FAERS Safety Report 20311614 (Version 1)
Quarter: 2022Q1

REPORT INFORMATION
  Report Type: Spontaneous
  Country: GB (occurrence: GB)
  Receive Date: 20220108
  Receipt Date: 20220108
  Transmission Date: 20220423
  Serious: Yes (Hospitalization)
  Sender: FDA-Public Use
  Company Number: None

PATIENT
  Age: 85 Year
  Sex: Female

DRUGS (14)
  1. PROLIA [Suspect]
     Active Substance: DENOSUMAB
     Indication: Osteoporosis
     Dosage: 60 MILLIGRAM, Q6MO
     Route: 058
  2. METHOTREXATE [Suspect]
     Active Substance: METHOTREXATE
     Indication: Rheumatoid arthritis
     Dosage: 20 MILLIGRAM, QWK
     Route: 058
  3. CALCIUM CARBONATE\CHOLECALCIFEROL [Concomitant]
     Active Substance: CALCIUM CARBONATE\CHOLECALCIFEROL
     Indication: Ill-defined disorder
  4. BECONASE AQ [Concomitant]
     Active Substance: BECLOMETHASONE DIPROPIONATE MONOHYDRATE
     Indication: Ill-defined disorder
     Dosage: UNK UNK, UNK
  5. CETIRIZINE [Concomitant]
     Active Substance: CETIRIZINE HYDROCHLORIDE
     Indication: Ill-defined disorder
     Dosage: UNK
  6. CODEINE [Concomitant]
     Active Substance: CODEINE
     Indication: Ill-defined disorder
     Dosage: UNK
  7. LANOLIN\LIGHT MINERAL OIL\PARAFFIN [Concomitant]
     Active Substance: LANOLIN\LIGHT MINERAL OIL\PARAFFIN
     Indication: Ill-defined disorder
     Dosage: UNK
  8. FOLIC ACID [Concomitant]
     Active Substance: FOLIC ACID
     Indication: Ill-defined disorder
     Dosage: UNK
  9. HYPROMELLOSES [Concomitant]
     Active Substance: HYPROMELLOSES
     Indication: Ill-defined disorder
     Dosage: UNK, UNK
  10. OMEPRAZOLE [Concomitant]
     Active Substance: OMEPRAZOLE
     Indication: Ill-defined disorder
     Dosage: UNK
  11. ACETAMINOPHEN [Concomitant]
     Active Substance: ACETAMINOPHEN
     Indication: Ill-defined disorder
     Dosage: UNK
  12. SIMVASTATIN [Concomitant]
     Active Substance: SIMVASTATIN
     Indication: Ill-defined disorder
     Dosage: UNK
  13. HERBALS\KARAYA GUM [Concomitant]
     Active Substance: HERBALS\KARAYA GUM
     Indication: Ill-defined disorder
     Dosage: UNK
  14. TRAZODONE [Concomitant]
     Active Substance: TRAZODONE HYDROCHLORIDE
     Indication: Ill-defined disorder
     Dosage: UNK

REACTIONS (1)
  - Femur fracture [Recovering/Resolving]
